FAERS Safety Report 26086834 (Version 1)
Quarter: 2025Q4

REPORT INFORMATION
  Report Type: Spontaneous
  Country: US (occurrence: None)
  Receive Date: 20251124
  Receipt Date: 20251124
  Transmission Date: 20260117
  Serious: Yes (Other)
  Sender: FDA-CTU
  Company Number: None

PATIENT
  Age: 29 Year
  Sex: Female

DRUGS (3)
  1. ASCORBIC ACID\BIOTIN\MINOXIDIL\PANTOTHENIC ACID\PYRIDOXINE\ZINC [Suspect]
     Active Substance: ASCORBIC ACID\BIOTIN\MINOXIDIL\PANTOTHENIC ACID\PYRIDOXINE\ZINC
     Indication: Alopecia
     Dosage: DAILY ORAL
     Route: 048
     Dates: start: 20251119, end: 20251119
  2. SPIRONOLACTONE [Suspect]
     Active Substance: SPIRONOLACTONE
  3. Mirena (52 MG) Intrauterine Intrauterine Device [Concomitant]

REACTIONS (2)
  - Dehydration [None]
  - Dizziness [None]

NARRATIVE: CASE EVENT DATE: 20251119
